FAERS Safety Report 19513377 (Version 3)
Quarter: 2021Q3

REPORT INFORMATION
  Report Type: Report from Study
  Country: US (occurrence: US)
  Receive Date: 20210709
  Receipt Date: 20210823
  Transmission Date: 20211014
  Serious: Yes (Hospitalization)
  Sender: FDA-Public Use
  Company Number: US-EXELIXIS-XL18421042091

PATIENT

DRUGS (3)
  1. NIVOLUMAB [Suspect]
     Active Substance: NIVOLUMAB
     Indication: METASTATIC MALIGNANT MELANOMA
     Dosage: 3 MG/KG, Q3WEEKS
     Route: 042
     Dates: start: 20201109
  2. XL184 [Suspect]
     Active Substance: CABOZANTINIB
     Indication: METASTATIC MALIGNANT MELANOMA
     Dosage: 40 MG, QD
     Route: 048
     Dates: start: 20201109, end: 20210426
  3. IPILIMUMAB [Suspect]
     Active Substance: IPILIMUMAB
     Indication: METASTATIC MALIGNANT MELANOMA
     Dosage: 1 MG/KG, Q3WEEKS
     Route: 042
     Dates: start: 20201109

REACTIONS (1)
  - Enteritis [Unknown]

NARRATIVE: CASE EVENT DATE: 20210701
